FAERS Safety Report 4870938-X (Version None)
Quarter: 2005Q4

REPORT INFORMATION
  Report Type: 
  Country: None (occurrence: None)
  Receive Date: 20051228
  Receipt Date: 20051220
  Transmission Date: 20060501
  Serious: Yes (Death)
  Sender: FDA-Public Use
  Company Number: 2005-135989-NL

PATIENT
  Age: 83 Year
  Sex: Female

DRUGS (11)
  1. MIRTAZAPINE [Suspect]
     Indication: CONFUSIONAL STATE
     Dosage: 30 MG, ORAL
     Route: 048
     Dates: start: 20050826
  2. MIRTAZAPINE [Suspect]
     Indication: DEPRESSION
     Dosage: 30 MG, ORAL
     Route: 048
     Dates: start: 20050826
  3. OLANZAPINE [Suspect]
     Indication: CONFUSIONAL STATE
     Dosage: 10 MG, ORAL
     Route: 048
     Dates: start: 20050826
  4. OLANZAPINE [Suspect]
     Indication: DEPRESSION
     Dosage: 10 MG, ORAL
     Route: 048
     Dates: start: 20050826
  5. VALPROIC ACID [Suspect]
     Indication: CONFUSIONAL STATE
     Dosage: 900 MG, ORAL
     Route: 048
     Dates: start: 20050826
  6. VALPROIC ACID [Suspect]
     Indication: DEPRESSION
     Dosage: 900 MG, ORAL
     Route: 048
     Dates: start: 20050826
  7. LORAZEPAM [Concomitant]
  8. FENTANYL [Concomitant]
  9. ASPIRIN [Concomitant]
  10. RAMIPRIL [Concomitant]
  11. TORSEMIDE [Concomitant]

REACTIONS (1)
  - CARDIAC ARREST [None]
